FAERS Safety Report 8911640 (Version 1)
Quarter: 2012Q4

REPORT INFORMATION
  Report Type: 
  Country: US (occurrence: US)
  Receive Date: 20121116
  Receipt Date: 20121116
  Transmission Date: 20130627
  Serious: Yes (Hospitalization)
  Sender: FDA-Public Use
  Company Number: US-BAYER-2012-118130

PATIENT
  Age: 32 Year
  Sex: Female
  Weight: 159.18 kg

DRUGS (17)
  1. YAZ [Suspect]
  2. AMOX-CLAV [Concomitant]
     Indication: ANTIBIOTIC THERAPY
     Dosage: 875 mg, 1 twice day
     Route: 048
     Dates: start: 20070307
  3. AMOX-CLAV [Concomitant]
     Indication: ANTIBIOTIC THERAPY
     Dosage: 875 mg, 1 twice day
     Dates: start: 20070306
  4. SITREX PD [Concomitant]
     Indication: COUGH
     Dosage: 1 tsp(teaspoon) q (6 hr (hour)
     Route: 048
     Dates: start: 20070307
  5. HYDRO DP [Concomitant]
     Dosage: 5 ml, q 6 H (hour) prn (when needed)
     Route: 048
     Dates: start: 20070307
  6. INDERAL [Concomitant]
     Dosage: 5 ml, q 6 hours
     Route: 048
     Dates: start: 20070307
  7. PREDNISONE [Concomitant]
     Dosage: 1 T (tablespoon) BID, 20 mg 1 BID (twice per day)
     Route: 048
     Dates: start: 20070307
  8. ALBUTEROL [Concomitant]
     Dosage: q 6 hours prn
     Route: 045
     Dates: start: 20070307
  9. PROAIR INHALER [Concomitant]
     Dosage: 2 puff(s), Q4HR, prn
     Route: 048
     Dates: start: 20070307
  10. METRONIDAZOLE [Concomitant]
     Dosage: 500 mg, 1 T BID
     Route: 048
     Dates: start: 20070430
  11. PROMETHAZINE [Concomitant]
     Dosage: 1 T 20 minutes before second and third dose of YazUNK
     Dates: start: 20070321
  12. PHENERGAN [Concomitant]
     Dosage: 25 mg 1 tablet 20 minutes before second and third dose of Yaz
     Dates: start: 20070321
  13. REPLIVA [Concomitant]
     Dosage: 150 mg, UNK
     Dates: start: 20070321
  14. TYLENOL ALLERGY [Concomitant]
     Indication: ALLERGY
     Dosage: 1, PRN
     Route: 048
  15. ACETAMINOPHEN [Concomitant]
     Dosage: UNK
  16. MEDROXYPROGESTERONE [Concomitant]
     Dosage: UNK
     Dates: start: 20070430
  17. PROVERA [Concomitant]
     Dosage: UNK
     Dates: start: 20070430

REACTIONS (2)
  - Deep vein thrombosis [None]
  - Pulmonary embolism [None]
